FAERS Safety Report 6238261-9 (Version None)
Quarter: 2009Q2

REPORT INFORMATION
  Report Type: 
  Country: None (occurrence: None)
  Receive Date: 20090617
  Receipt Date: 20090617
  Transmission Date: 20091009
  Serious: Yes (Disabling)
  Sender: FDA-Public Use
  Company Number: None

PATIENT
  Age: 58 Year
  Sex: Male
  Weight: 98 kg

DRUGS (10)
  1. VANCOMYCIN [Suspect]
     Indication: CELLULITIS STAPHYLOCOCCAL
     Dosage: 1250 MG EVERY 12 HOURS IV DRIP
     Route: 041
     Dates: start: 20081112, end: 20081123
  2. ZOSYN [Suspect]
     Indication: CELLULITIS STAPHYLOCOCCAL
     Dosage: 3.375 GM EVERY 6 HOURS IV DRIP
     Route: 041
     Dates: start: 20081112, end: 20081123
  3. AMLODIPINE [Concomitant]
  4. CHOLESTYRAMINE [Concomitant]
  5. DALTEPARIN SODIUM [Concomitant]
  6. FLUCONAZOLE [Concomitant]
  7. FUROSEMIDE [Concomitant]
  8. INSULIN GLARGINE [Concomitant]
  9. LABETOLOL [Concomitant]
  10. ACETAMINOPHIN/OXYCODONE [Concomitant]

REACTIONS (1)
  - RENAL FAILURE ACUTE [None]
